FAERS Safety Report 11916272 (Version 1)
Quarter: 2016Q1

REPORT INFORMATION
  Report Type: Spontaneous
  Country: JP (occurrence: JP)
  Receive Date: 20160114
  Receipt Date: 20160114
  Transmission Date: 20160526
  Serious: Yes (Other)
  Sender: FDA-Public Use
  Company Number: JP-009507513-1601JPN003524

PATIENT
  Age: 69 Year
  Sex: Male

DRUGS (8)
  1. GLACTIV [Suspect]
     Active Substance: SITAGLIPTIN
     Indication: TYPE 2 DIABETES MELLITUS
     Dosage: 25 MG, 1X/DAY, IN THE MORNING
     Route: 048
     Dates: start: 20150428
  2. LYRICA [Suspect]
     Active Substance: PREGABALIN
     Indication: HYPERAESTHESIA
     Dosage: 150 MG, TWICE A DAY, IN THE MORNING AND EVENING
     Route: 048
     Dates: start: 20150713, end: 20150720
  3. LYRICA [Suspect]
     Active Substance: PREGABALIN
     Dosage: 75 MG, ONCE A DAY, IN THE EVENING
     Route: 048
     Dates: start: 20151006
  4. LYRICA [Suspect]
     Active Substance: PREGABALIN
     Indication: BACK PAIN
     Dosage: 75 MG, TWICE A DAY, IN THE MORNING AND EVENING
     Route: 048
     Dates: start: 20150706, end: 20150712
  5. AMLODIPINE BESYLATE. [Suspect]
     Active Substance: AMLODIPINE BESYLATE
     Indication: PRODUCT USED FOR UNKNOWN INDICATION
     Dosage: 5 MG, ONCE A DAY, IN THE MORNING
     Route: 048
     Dates: start: 2000, end: 20150819
  6. KALLIDINOGENASE [Suspect]
     Active Substance: KALLIDINOGENASE
     Indication: PRODUCT USED FOR UNKNOWN INDICATION
     Dosage: 3 DF, UNK
     Route: 048
     Dates: start: 20150901
  7. LYRICA [Suspect]
     Active Substance: PREGABALIN
     Dosage: 75 MG, TWICE A DAY, IN THE MORNING AND EVENING
     Route: 048
     Dates: start: 20150721, end: 20150802
  8. LYRICA [Suspect]
     Active Substance: PREGABALIN
     Dosage: 150 MG, TWICE A DAY, IN THE MORNING AND EVENING
     Route: 048
     Dates: start: 20150803, end: 20151005

REACTIONS (6)
  - Conjunctival haemorrhage [Unknown]
  - Hypogeusia [Not Recovered/Not Resolved]
  - Rash [Not Recovered/Not Resolved]
  - Zinc deficiency [Unknown]
  - Drug interaction [Unknown]
  - Eyelid bleeding [Unknown]

NARRATIVE: CASE EVENT DATE: 201507
